FAERS Safety Report 7671229-4 (Version None)
Quarter: 2011Q3

REPORT INFORMATION
  Report Type: 
  Country: None (occurrence: None)
  Receive Date: 20110808
  Receipt Date: 20110808
  Transmission Date: 20111222
  Serious: Yes (Disabling)
  Sender: FDA-Public Use
  Company Number: None

PATIENT
  Age: 20 Year
  Sex: Female
  Weight: 57.1532 kg

DRUGS (2)
  1. JARROWS METHYL-B 12 METHYLCOBALAMIN 1000 MCG [Suspect]
     Indication: AFFECTIVE DISORDER
     Dosage: 1000 MCG 1-3 TIMES DAILY SUBLINGUAL
     Route: 060
     Dates: start: 20091001, end: 20100501
  2. JARROWS METHYL B 12 METHYLCOBALAMIN 5000 MCG [Suspect]
     Indication: ASTHENIA
     Dosage: 5000MCG 1-2 TIMES DAILY SUBLINGUAL
     Route: 060
     Dates: start: 20110101, end: 20110401

REACTIONS (11)
  - AGGRESSION [None]
  - PARTNER STRESS [None]
  - IRRITABILITY [None]
  - JUDGEMENT IMPAIRED [None]
  - MYDRIASIS [None]
  - FLAT AFFECT [None]
  - INCORRECT DRUG ADMINISTRATION DURATION [None]
  - DRUG LEVEL INCREASED [None]
  - PERSONALITY CHANGE [None]
  - DRUG DEPENDENCE [None]
  - ABNORMAL BEHAVIOUR [None]
